FAERS Safety Report 10967396 (Version 1)
Quarter: 2015Q1

REPORT INFORMATION
  Report Type: Spontaneous
  Country: IT (occurrence: IT)
  Receive Date: 20150330
  Receipt Date: 20150330
  Transmission Date: 20150721
  Serious: Yes (Hospitalization)
  Sender: FDA-Public Use
  Company Number: IT-ASTRAZENECA-2015SE28552

PATIENT
  Age: 28491 Day
  Sex: Male

DRUGS (9)
  1. LEVOXACIN [Suspect]
     Active Substance: LEVOFLOXACIN
     Indication: BRONCHOPNEUMONIA
     Route: 048
     Dates: start: 20150208, end: 20150208
  2. SEROQUEL [Suspect]
     Active Substance: QUETIAPINE FUMARATE
     Indication: COGNITIVE DISORDER
     Route: 048
     Dates: start: 20150101, end: 20150208
  3. EUTIROX (LEVOTHYROXINE) [Concomitant]
  4. LANSOX (LANSOPRAZOLE) [Concomitant]
     Active Substance: LANSOPRAZOLE
     Dosage: 15 MG HARD CAPSULES
  5. CARDIOASPIRIN [Concomitant]
     Active Substance: ASPIRIN
     Dosage: 100 MG GASTRO-RESISTANT TABLETS
     Route: 048
  6. ROCALTROL [Concomitant]
     Active Substance: CALCITRIOL
     Dosage: 0.50 MCG SOFT CAPSULES
  7. MEDROL [Concomitant]
     Active Substance: METHYLPREDNISOLONE
  8. NITRAKET [Concomitant]
     Active Substance: NITROGLYCERIN
  9. CLEXANE [Concomitant]
     Active Substance: ENOXAPARIN SODIUM
     Dosage: 2000 IU AXA/0.2 ML INJECTABLE SOLUTION-PREFILLED SYRINGES

REACTIONS (2)
  - Confusional state [Unknown]
  - Product use issue [Unknown]

NARRATIVE: CASE EVENT DATE: 20150208
